FAERS Safety Report 21879852 (Version 1)
Quarter: 2023Q1

REPORT INFORMATION
  Report Type: Spontaneous
  Country: US (occurrence: None)
  Receive Date: 20230117
  Receipt Date: 20230117
  Transmission Date: 20230417
  Serious: Yes (Disabling)
  Sender: FDA-Public Use
  Company Number: None

PATIENT
  Age: 28 Year
  Sex: Female
  Weight: 103.5 kg

DRUGS (6)
  1. NEXPLANON [Suspect]
     Active Substance: ETONOGESTREL
     Indication: Contraception
     Dosage: OTHER FREQUENCY : IMPLANTED FOR YEAR;?OTHER ROUTE : UNDER SKIN IN ARM;?
     Route: 050
  2. LATUDA [Concomitant]
     Active Substance: LURASIDONE HYDROCHLORIDE
  3. BUSPIRONE [Concomitant]
     Active Substance: BUSPIRONE HYDROCHLORIDE
  4. BUPROPION [Concomitant]
     Active Substance: BUPROPION
  5. Mitrazapine [Concomitant]
  6. CANNABIS SATIVA SUBSP. INDICA TOP [Concomitant]
     Active Substance: CANNABIS SATIVA SUBSP. INDICA TOP

REACTIONS (8)
  - Polycystic ovaries [None]
  - Hypersensitivity [None]
  - Urticaria [None]
  - Implant site reaction [None]
  - Hypoaesthesia [None]
  - Muscle spasms [None]
  - Ovarian fibroma [None]
  - Weight increased [None]

NARRATIVE: CASE EVENT DATE: 20230106
